FAERS Safety Report 5586047-0 (Version None)
Quarter: 2007Q4

REPORT INFORMATION
  Report Type: 
  Country: None (occurrence: None)
  Receive Date: 20071205
  Receipt Date: 20070629
  Transmission Date: 20080405
  Serious: Yes (Other)
  Sender: FDA-Public Use
  Company Number: HQWYE900403JUL07

PATIENT
  Age: 42 Year
  Sex: Male

DRUGS (1)
  1. EFFEXOR XR [Suspect]
     Indication: DRUG USE FOR UNKNOWN INDICATION
     Dosage: ^75-150 MG^ DAILY

REACTIONS (1)
  - ALCOHOLISM [None]
